FAERS Safety Report 5926054-9 (Version None)
Quarter: 2008Q4

REPORT INFORMATION
  Report Type: 
  Country: None (occurrence: None)
  Receive Date: 20081021
  Receipt Date: 20081014
  Transmission Date: 20090506
  Serious: Yes (Hospitalization, Other)
  Sender: FDA-Public Use
  Company Number: US-AMGEN-STX299089

PATIENT
  Sex: Female
  Weight: 63.1 kg

DRUGS (3)
  1. ENBREL [Suspect]
     Indication: RHEUMATOID ARTHRITIS
     Route: 058
     Dates: start: 20031001
  2. DYAZIDE [Suspect]
     Dates: end: 20080811
  3. ARAVA [Concomitant]
     Indication: RHEUMATOID ARTHRITIS
     Route: 048

REACTIONS (3)
  - HYPERTENSION [None]
  - HYPOKALAEMIA [None]
  - OEDEMA PERIPHERAL [None]
